FAERS Safety Report 8612791-4 (Version None)
Quarter: 2012Q3

REPORT INFORMATION
  Report Type: 
  Country: None (occurrence: None)
  Receive Date: 20120822
  Receipt Date: 20111005
  Transmission Date: 20120928
  Serious: No
  Sender: FDA-Public Use
  Company Number: US-ASTRAZENECA-2008UW01328

PATIENT
  Age: 78 Year
  Sex: Female
  Weight: 47.6 kg

DRUGS (13)
  1. SYMBICORT [Suspect]
     Indication: NASOPHARYNGITIS
     Dosage: 80/4.5 MICROGRAMS ONE PUFF IN AM
     Route: 055
     Dates: start: 20080104
  2. ALBUTEROL [Concomitant]
  3. ENALAPRIL MALEATE [Concomitant]
  4. SYMBICORT [Suspect]
     Dosage: 160/4.5 MICROGRAMS ONE PUFF IN AM, TWO PUFFS IN PM
     Route: 055
  5. AZMACORT [Concomitant]
  6. SYMBICORT [Suspect]
     Dosage: TWO TIMES DAILY.
     Route: 055
     Dates: start: 20110701
  7. SYMBICORT [Suspect]
     Indication: BRONCHITIS
     Dosage: 80/4.5 MICROGRAMS ONE PUFF IN AM
     Route: 055
     Dates: start: 20080104
  8. SYMBICORT [Suspect]
     Dosage: 160/4.5 MICROGRAMS ONE PUFF IN AM
     Route: 055
  9. SYMBICORT [Suspect]
     Dosage: 160/4.5 MICROGRAMS ONE PUFF IN AM
     Route: 055
  10. SYMBICORT [Suspect]
     Dosage: 160/4.5 MICROGRAMS ONE PUFF IN AM, TWO PUFFS IN PM
     Route: 055
  11. SYNTHROID [Concomitant]
  12. MULTIPLE VITAMIN [Concomitant]
  13. SYMBICORT [Suspect]
     Dosage: TWO TIMES DAILY.
     Route: 055
     Dates: start: 20110701

REACTIONS (7)
  - INCORRECT DOSE ADMINISTERED BY DEVICE [None]
  - ASTHMA [None]
  - DYSPHONIA [None]
  - TEMPERATURE REGULATION DISORDER [None]
  - PARAESTHESIA [None]
  - NERVOUSNESS [None]
  - DYSPNOEA [None]
